FAERS Safety Report 4595303-4 (Version None)
Quarter: 2005Q1

REPORT INFORMATION
  Report Type: 
  Country: None (occurrence: None)
  Receive Date: 20050223
  Receipt Date: 20050210
  Transmission Date: 20050727
  Serious: Yes (Hospitalization, Other)
  Sender: FDA-Public Use
  Company Number: 2005028672

PATIENT
  Age: 79 Year
  Sex: Male
  Weight: 102.5129 kg

DRUGS (6)
  1. LIPITOR [Suspect]
     Indication: ILL-DEFINED DISORDER
     Dosage: 10 MG (10 MG, 1 IN 1 D)
     Dates: start: 19970101, end: 20031201
  2. ALL OTHER THERAPEUTIC PRODUCTS (ALL OTHER THERAPEUTIC PRODUCTS) [Suspect]
     Indication: ILL-DEFINED DISORDER
  3. ALL OTHER THERAPEUTIC PRODUCTS (ALL OTHER THERAPEUTIC PRODUCTS) [Suspect]
     Indication: ILL-DEFINED DISORDER
  4. DOXAZOSIN MESYLATE [Concomitant]
  5. SOTALOL HCL [Concomitant]
  6. DIGOXIN [Concomitant]

REACTIONS (9)
  - ANURIA [None]
  - ASTHENIA [None]
  - DIALYSIS [None]
  - DIFFICULTY IN WALKING [None]
  - DYSSTASIA [None]
  - FATIGUE [None]
  - MUSCULAR WEAKNESS [None]
  - SEPSIS [None]
  - SKIN DISCOLOURATION [None]
